FAERS Safety Report 4515028-0 (Version None)
Quarter: 2004Q4

REPORT INFORMATION
  Report Type: 
  Country: None (occurrence: None)
  Receive Date: 20041129
  Receipt Date: 20041129
  Transmission Date: 20050328
  Serious: Yes (Life-Threatening)
  Sender: FDA-Public Use
  Company Number: None

PATIENT
  Age: 46 Year
  Sex: Female
  Weight: 54.4316 kg

DRUGS (2)
  1. XANAX [Suspect]
     Indication: DEPRESSION
     Dosage: 3 TO 5 MG DAILY ORAL
     Route: 048
  2. DOXEPIN HCL [Suspect]
     Indication: DEPRESSION
     Dosage: 100MG  DAILY  ORAL
     Route: 048

REACTIONS (8)
  - DRUG WITHDRAWAL SYNDROME [None]
  - DYSGEUSIA [None]
  - FALL [None]
  - GRAND MAL CONVULSION [None]
  - INSOMNIA [None]
  - MARKEDLY REDUCED DIETARY INTAKE [None]
  - SKIN DISCOLOURATION [None]
  - TREATMENT NONCOMPLIANCE [None]
